FAERS Safety Report 23255756 (Version 1)
Quarter: 2023Q4

REPORT INFORMATION
  Report Type: Report from Study
  Country: JP (occurrence: JP)
  Receive Date: 20231204
  Receipt Date: 20231204
  Transmission Date: 20240109
  Serious: Yes (Other)
  Sender: FDA-Public Use
  Company Number: JP-TAKEDA-2023TJP015386

PATIENT
  Age: 76 Year
  Sex: Female

DRUGS (3)
  1. PANITUMUMAB [Suspect]
     Active Substance: PANITUMUMAB
     Indication: Colon cancer recurrent
     Dosage: UNK UNK, Q2WEEKS
     Route: 042
     Dates: start: 20170615, end: 20170727
  2. PANITUMUMAB [Suspect]
     Active Substance: PANITUMUMAB
     Dosage: UNK UNK, Q2WEEKS
     Route: 042
     Dates: start: 20170824, end: 20170824
  3. PANITUMUMAB [Suspect]
     Active Substance: PANITUMUMAB
     Dosage: UNK UNK, Q2WEEKS
     Route: 042
     Dates: start: 20170921

REACTIONS (8)
  - Blood alkaline phosphatase abnormal [Unknown]
  - Hypernatraemia [Unknown]
  - Skin disorder [Unknown]
  - Hypomagnesaemia [Unknown]
  - Hypokalaemia [Unknown]
  - Hypocalcaemia [Unknown]
  - Dermatitis acneiform [Unknown]
  - Alopecia [Unknown]
